FAERS Safety Report 20032738 (Version 5)
Quarter: 2022Q3

REPORT INFORMATION
  Report Type: Spontaneous
  Country: GB (occurrence: GB)
  Receive Date: 20211104
  Receipt Date: 20220907
  Transmission Date: 20221027
  Serious: Yes (Other)
  Sender: FDA-Public Use
  Company Number: GB-BIOGEN-2020BI00921509

PATIENT
  Sex: Female

DRUGS (7)
  1. AVONEX PEN [Suspect]
     Active Substance: INTERFERON BETA-1A
     Indication: Multiple sclerosis
     Route: 050
     Dates: start: 2001
  2. AVONEX PEN [Suspect]
     Active Substance: INTERFERON BETA-1A
     Route: 050
     Dates: start: 2003
  3. AVONEX PEN [Suspect]
     Active Substance: INTERFERON BETA-1A
     Route: 050
     Dates: start: 200705
  4. AVONEX PEN [Suspect]
     Active Substance: INTERFERON BETA-1A
     Dosage: 30MCG (6MIU)
     Route: 050
  5. AMLODIPINE [Concomitant]
     Active Substance: AMLODIPINE BESYLATE
     Indication: Product used for unknown indication
     Route: 050
  6. AMITRIPTYLINE [Concomitant]
     Active Substance: AMITRIPTYLINE
     Indication: Product used for unknown indication
     Route: 050
  7. CALCIUM CARBONATE\CHOLECALCIFEROL [Concomitant]
     Active Substance: CALCIUM CARBONATE\CHOLECALCIFEROL
     Indication: Product used for unknown indication
     Route: 050

REACTIONS (18)
  - Lung neoplasm malignant [Unknown]
  - Thyroid cancer [Unknown]
  - Suicidal ideation [Unknown]
  - Neoplasm malignant [Unknown]
  - Urinary tract infection [Unknown]
  - Multiple sclerosis [Unknown]
  - Arthropathy [Unknown]
  - Back disorder [Unknown]
  - Mobility decreased [Unknown]
  - Mental disorder [Unknown]
  - Multiple sclerosis relapse [Unknown]
  - Stress [Unknown]
  - Muscle spasms [Unknown]
  - Limb discomfort [Unknown]
  - Fatigue [Unknown]
  - Muscle tightness [Unknown]
  - Pain [Unknown]
  - Anxiety [Unknown]
